FAERS Safety Report 23820691 (Version 1)
Quarter: 2024Q2

REPORT INFORMATION
  Report Type: Report from Study
  Country: US (occurrence: US)
  Receive Date: 20240506
  Receipt Date: 20240506
  Transmission Date: 20240716
  Serious: Yes (Death)
  Sender: FDA-Public Use
  Company Number: US-Eisai-EC-2024-165147

PATIENT
  Age: 58 Year
  Sex: Male
  Weight: 84.91 kg

DRUGS (29)
  1. LENVIMA [Suspect]
     Active Substance: LENVATINIB
     Indication: Thyroid cancer
     Route: 048
     Dates: start: 20190827, end: 2019
  2. LENVIMA [Suspect]
     Active Substance: LENVATINIB
     Route: 048
     Dates: start: 20191101, end: 20191204
  3. LENVIMA [Suspect]
     Active Substance: LENVATINIB
     Route: 048
     Dates: start: 20191205, end: 2023
  4. LENVIMA [Suspect]
     Active Substance: LENVATINIB
     Route: 048
     Dates: start: 2023, end: 202403
  5. AZELASTINE [Concomitant]
     Active Substance: AZELASTINE\AZELASTINE HYDROCHLORIDE
     Dosage: DOSE AND FREQUENCY UNKNOWN
  6. BACTRIM [Concomitant]
     Active Substance: SULFAMETHOXAZOLE\TRIMETHOPRIM
     Dosage: DOSE AND FREQUENCY UNKNOWN
  7. BUPROPION [Concomitant]
     Active Substance: BUPROPION
     Dosage: DOSE AND FREQUENCY UNKNOWN
  8. CLOBETASOL [Concomitant]
     Active Substance: CLOBETASOL
     Dosage: DOSE AND FREQUENCY UNKNOWN
  9. IBUPROFEN [Concomitant]
     Active Substance: IBUPROFEN
     Dosage: DOSE AND FREQUENCY UNKNOWN
  10. LIDOCAINE [Concomitant]
     Active Substance: LIDOCAINE
     Dosage: DOSE AND FREQUENCY UNKNOWN
  11. LISINOPRIL [Concomitant]
     Active Substance: LISINOPRIL
     Dosage: DOSE AND FREQUENCY UNKNOWN
  12. LOVASTATIN [Concomitant]
     Active Substance: LOVASTATIN
     Dosage: DOSE AND FREQUENCY UNKNOWN
  13. MEDROXYPROGESTERONE [Concomitant]
     Active Substance: MEDROXYPROGESTERONE
     Dosage: DOSE AND FREQUENCY UNKNOWN
  14. SYNTHROID [Concomitant]
     Active Substance: LEVOTHYROXINE SODIUM
     Dosage: DOSE AND FREQUENCY UNKNOWN
  15. UREA [Concomitant]
     Active Substance: UREA
     Dosage: DOSE AND FREQUENCY UNKNOWN
  16. LORAZEPAM [Concomitant]
     Active Substance: LORAZEPAM
     Dosage: DOSE AND FREQUENCY UNKNOWN
  17. IMODIUM [Concomitant]
     Active Substance: LOPERAMIDE HYDROCHLORIDE
     Dosage: DOSE AND FREQUENCY UNKNOWN
  18. MELATONIN [Concomitant]
     Active Substance: MELATONIN
     Dosage: DOSE AND FREQUENCY UNKNOWN
  19. VITAMIN B6 [Concomitant]
     Active Substance: PYRIDOXINE HYDROCHLORIDE
     Dosage: DOSE AND FREQUENCY UNKNOWN
  20. PROBIOTIC BLEND 2B CELL [Concomitant]
     Dosage: DOSE AND FREQUENCY UNKNOWN
  21. VITAMIN C [Concomitant]
     Active Substance: ASCORBIC ACID
     Dosage: DOSE AND FREQUENCY UNKNOWN
  22. FLUCONAZOLE [Concomitant]
     Active Substance: FLUCONAZOLE
     Dosage: DOSE AND FREQUENCY UNKNOWN
  23. CEFPODOXIME PROXETIL [Concomitant]
     Active Substance: CEFPODOXIME PROXETIL
     Dosage: DOSE AND FREQUENCY UNKNOWN
  24. TESSALON [Concomitant]
     Active Substance: BENZONATATE
     Dosage: FREQUENCY UNKNOWN
  25. CEFUROXIME [Concomitant]
     Active Substance: CEFUROXIME
     Dosage: FREQUENCY UNKNOWN
  26. PAXLOVID [Concomitant]
     Active Substance: NIRMATRELVIR\RITONAVIR
     Dosage: DOSE AND FREQUENCY UNKNOWN
  27. HYDROCHLOROTHIAZIDE\LOSARTAN [Concomitant]
     Active Substance: HYDROCHLOROTHIAZIDE\LOSARTAN
     Dosage: DOSE AND FREQUENCY UNKNOWN
  28. PAXLOVID [Concomitant]
     Active Substance: NIRMATRELVIR\RITONAVIR
     Dosage: DOSE AND FREQUENCY UNKNOWN
  29. METOPROLOL TARTRATE [Concomitant]
     Active Substance: METOPROLOL TARTRATE
     Dosage: DOSE AND FREQUENCY UNKNOWN

REACTIONS (1)
  - Myocardial infarction [Fatal]

NARRATIVE: CASE EVENT DATE: 20240306
